FAERS Safety Report 6921532-8 (Version None)
Quarter: 2010Q3

REPORT INFORMATION
  Report Type: 
  Country: None (occurrence: None)
  Receive Date: 20100812
  Receipt Date: 20100712
  Transmission Date: 20110219
  Serious: No
  Sender: FDA-Public Use
  Company Number: US-BAYER-201018235BCC

PATIENT
  Age: 30 Year
  Sex: Male
  Weight: 75 kg

DRUGS (3)
  1. ALEVE [Suspect]
     Indication: TOOTHACHE
     Dosage: AS USED: 440/220/440 MG  UNIT DOSE: 220 MG
     Route: 048
     Dates: start: 20100711
  2. MOTRIN [Concomitant]
  3. ACETAMINOPHEN [Concomitant]

REACTIONS (1)
  - NO ADVERSE EVENT [None]
